FAERS Safety Report 25739067 (Version 1)
Quarter: 2025Q3

REPORT INFORMATION
  Report Type: Spontaneous
  Country: US (occurrence: US)
  Receive Date: 20250829
  Receipt Date: 20250829
  Transmission Date: 20251020
  Serious: No
  Sender: MDD OPERATIONS
  Company Number: US-002147023-MDD202507-002714

PATIENT
  Age: 61 Year
  Sex: Female
  Weight: 64.41 kg

DRUGS (13)
  1. ONAPGO [Suspect]
     Active Substance: APOMORPHINE HYDROCHLORIDE
     Indication: Product used for unknown indication
     Dates: start: 20250701
  2. Flexon Cres [Concomitant]
     Dosage: 87.5MG-350MG (2 TABLETS)
  3. GABAPENTIN [Concomitant]
     Active Substance: GABAPENTIN
     Dosage: (2 TABLETS)
  4. CARBIDOPA\LEVODOPA [Concomitant]
     Active Substance: CARBIDOPA\LEVODOPA
     Dosage: EACH DF CONTAINS 2.5 MG- 100 MG
  5. GOCOVRI [Concomitant]
     Active Substance: AMANTADINE
     Route: 048
  6. OMEPRAZOLE [Concomitant]
     Active Substance: OMEPRAZOLE
  7. ASPIRIN [Concomitant]
     Active Substance: ASPIRIN
  8. ESCITALOPRAM OXALATE [Concomitant]
     Active Substance: ESCITALOPRAM OXALATE
  9. ROPINIROLE [Concomitant]
     Active Substance: ROPINIROLE
  10. SYNTHROID [Concomitant]
     Active Substance: LEVOTHYROXINE SODIUM
  11. MELATONIN [Concomitant]
     Active Substance: MELATONIN
  12. SENNA [Concomitant]
     Active Substance: SENNOSIDES
  13. ALPRAZOLAM [Concomitant]
     Active Substance: ALPRAZOLAM

REACTIONS (1)
  - Somnolence [Unknown]

NARRATIVE: CASE EVENT DATE: 20250701
